FAERS Safety Report 9244349 (Version 1)
Quarter: 2013Q1

REPORT INFORMATION
  Report Type: Spontaneous
  Country: US (occurrence: None)
  Receive Date: 20121130
  Receipt Date: 20121130
  Transmission Date: 20140127
  Serious: Yes (Other)
  Sender: FDA-Public Use
  Company Number: US201207006171

PATIENT
  Age: 61 Year
  Sex: Male
  Weight: 89.8 kg

DRUGS (6)
  1. BYDUREON [Suspect]
     Indication: TYPE 2 DIABETES MELLITUS
  2. METFORMIN (METFORMIN) [Concomitant]
  3. NOVOLOG (INSULIN ASPART) [Concomitant]
  4. LEVEMIR (INSULIN DETEMIR) [Concomitant]
  5. ACTOS/USA/(PIOGLITAZONE HYDROCHLORIDE) [Concomitant]
  6. GLIPIZIDE (GLIPIZIDE) [Concomitant]

REACTIONS (12)
  - Blood glucose decreased [None]
  - Blood glucose increased [None]
  - Dysphagia [None]
  - Dysphonia [None]
  - Nasopharyngitis [None]
  - Nasal discharge discolouration [None]
  - Erectile dysfunction [None]
  - Fatigue [None]
  - Confusional state [None]
  - Dizziness [None]
  - Hyperhidrosis [None]
  - Off label use [None]
